FAERS Safety Report 7057980-8 (Version None)
Quarter: 2010Q4

REPORT INFORMATION
  Report Type: 
  Country: None (occurrence: None)
  Receive Date: 20101022
  Receipt Date: 20101012
  Transmission Date: 20110411
  Serious: No
  Sender: FDA-Public Use
  Company Number: JP-PFIZER INC-2010119949

PATIENT
  Age: 89 Year
  Sex: Female

DRUGS (6)
  1. DETRUSITOL [Suspect]
     Dosage: 2 MG, 1X/DAY
     Route: 048
     Dates: start: 20100101
  2. PEROSPIRONE HYDROCHLORIDE [Concomitant]
     Dosage: 1.5 MG, UNK
     Route: 048
  3. GASMOTIN [Concomitant]
     Dosage: 2 DF, UNK
     Route: 048
  4. DESYREL [Concomitant]
     Dosage: 0.5 MG, UNK
     Route: 048
  5. FLUITRAN [Concomitant]
     Dosage: 0.5 MG, UNK
     Route: 048
  6. MAGNESIUM OXIDE [Concomitant]
     Dosage: 2 G, UNK
     Route: 048

REACTIONS (1)
  - MICTURITION FREQUENCY DECREASED [None]
